FAERS Safety Report 5488582-2 (Version None)
Quarter: 2007Q4

REPORT INFORMATION
  Report Type: 
  Country: None (occurrence: None)
  Receive Date: 20071017
  Receipt Date: 20070201
  Transmission Date: 20080405
  Serious: No
  Sender: FDA-Public Use
  Company Number: A0637995A

PATIENT
  Age: 85 Year
  Sex: Female

DRUGS (4)
  1. CEFUROXIME AXETIL [Suspect]
     Dosage: 500MG TWICE PER DAY
     Route: 048
     Dates: start: 20060101
  2. MEPROBAMATE [Concomitant]
  3. TAGAMET [Concomitant]
  4. TYLENOL (CAPLET) [Concomitant]

REACTIONS (1)
  - DRUG INEFFECTIVE [None]
